FAERS Safety Report 4579394-2 (Version None)
Quarter: 2005Q1

REPORT INFORMATION
  Report Type: 
  Country: None (occurrence: None)
  Receive Date: 20050209
  Receipt Date: 20050126
  Transmission Date: 20050727
  Serious: Yes (Hospitalization, Other)
  Sender: FDA-Public Use
  Company Number: US_0502111672

PATIENT
  Age: 67 Year
  Sex: Female

DRUGS (1)
  1. HUMALOG- HUMAN INSULIN (RDNA): 25% LISPRO, 75% NPL (LI [Suspect]
     Indication: DIABETES MELLITUS
     Dosage: 60 U DAY

REACTIONS (6)
  - ANKLE FRACTURE [None]
  - BLOOD GLUCOSE INCREASED [None]
  - CEREBROVASCULAR ACCIDENT [None]
  - FEELING ABNORMAL [None]
  - THROMBOSIS [None]
  - WEIGHT FLUCTUATION [None]
